FAERS Safety Report 19706274 (Version 1)
Quarter: 2021Q3

REPORT INFORMATION
  Report Type: Spontaneous
  Country: CN (occurrence: CN)
  Receive Date: 20210817
  Receipt Date: 20210817
  Transmission Date: 20211014
  Serious: Yes (Other)
  Sender: FDA-Public Use
  Company Number: CN-009507513-2108CHN003298

PATIENT
  Age: 85 Year
  Sex: Male
  Weight: 65 kg

DRUGS (2)
  1. TIENAM [Suspect]
     Active Substance: CILASTATIN SODIUM\IMIPENEM
     Indication: TUBERCULOSIS
     Dosage: 0.5 GRAM, FOUR TIMES A DAY (QID) (EVERY 6 HOURS)
     Route: 041
     Dates: start: 20210725, end: 20210805
  2. SODIUM CHLORIDE. [Concomitant]
     Active Substance: SODIUM CHLORIDE
     Indication: TUBERCULOSIS
     Dosage: 100 MILLILITER, FOUR TIMES A DAY (QID) (EVERY 6 HOURS); DOUBLE VALVE
     Route: 041
     Dates: start: 20210725, end: 20210805

REACTIONS (9)
  - Altered state of consciousness [Unknown]
  - Chest discomfort [Recovering/Resolving]
  - Cough [Unknown]
  - Dyspnoea [Unknown]
  - Restlessness [Recovering/Resolving]
  - Productive cough [Unknown]
  - Agitation [Unknown]
  - Disorganised speech [Unknown]
  - Product use in unapproved indication [Unknown]

NARRATIVE: CASE EVENT DATE: 20210725
